FAERS Safety Report 9646442 (Version 1)
Quarter: 2013Q4

REPORT INFORMATION
  Report Type: Spontaneous
  Country: US (occurrence: US)
  Receive Date: 20131025
  Receipt Date: 20131025
  Transmission Date: 20140711
  Serious: Yes (Disabling, Other)
  Sender: FDA-Public Use
  Company Number: US-ASTRAZENECA-2013SE76750

PATIENT
  Age: 51 Year
  Sex: Female
  Weight: 47.2 kg

DRUGS (6)
  1. SEROQUEL [Suspect]
     Route: 048
     Dates: start: 2008
  2. EFFEXOR XR [Suspect]
     Indication: DEPRESSION
     Dosage: 150 MG IN MORNING, 75 MG IN AFTERNOON AND 150 MG IN NIGHT THREE TIMES A DAY
     Dates: start: 200508
  3. EFFEXOR XR [Suspect]
     Indication: DEPRESSION
     Dosage: 300 MG (2 CAPSULES OF 150 MG) IN THE MORNING AND 75 MG IN AFTERNOON TWO TIMES A DAY
  4. KLONOPIN [Suspect]
     Route: 065
     Dates: start: 2005
  5. VITAMIN B12 [Concomitant]
  6. CHEMOTHERAPY [Concomitant]
     Dates: start: 2011

REACTIONS (6)
  - Adverse drug reaction [Unknown]
  - Infection [Unknown]
  - Pseudolymphoma [Not Recovered/Not Resolved]
  - Colitis [Unknown]
  - Platelet count decreased [Unknown]
  - Intentional drug misuse [Unknown]
